FAERS Safety Report 7184661-2 (Version None)
Quarter: 2010Q4

REPORT INFORMATION
  Report Type: 
  Country: None (occurrence: None)
  Receive Date: 20101222
  Receipt Date: 20100524
  Transmission Date: 20110411
  Serious: No
  Sender: FDA-Public Use
  Company Number: US-AMGEN-KDL413945

PATIENT

DRUGS (5)
  1. ENBREL [Suspect]
     Indication: PRODUCT USED FOR UNKNOWN INDICATION
     Dosage: 50 MG, QWK
     Route: 058
  2. PREDNISONE [Concomitant]
     Dosage: 2.5 MG, UNK
  3. LEFLUNOMIDE [Concomitant]
     Dosage: 10 MG, UNK
  4. PYRIDOXINE HYDROCHLORIDE [Concomitant]
     Dosage: 100 MG, UNK
  5. IBUPROFEN [Concomitant]
     Dosage: 200 MG, UNK

REACTIONS (5)
  - ERYTHEMA [None]
  - HEADACHE [None]
  - LOCALISED OEDEMA [None]
  - PRURITUS [None]
  - URTICARIA [None]
